FAERS Safety Report 7248745-2 (Version None)
Quarter: 2011Q1

REPORT INFORMATION
  Report Type: 
  Country: None (occurrence: None)
  Receive Date: 20110128
  Receipt Date: 20110118
  Transmission Date: 20110831
  Serious: Yes (Hospitalization, Other)
  Sender: FDA-Public Use
  Company Number: US-BAYER-2011-007578

PATIENT
  Sex: Female

DRUGS (1)
  1. INTERFERON BETA-1B [Suspect]
     Indication: MULTIPLE SCLEROSIS
     Dosage: 8 MIU, QOD
     Route: 058
     Dates: start: 20090916, end: 20101117

REACTIONS (6)
  - NECK PAIN [None]
  - MENINGITIS VIRAL [None]
  - VOMITING [None]
  - CONVULSION [None]
  - BACK PAIN [None]
  - PYREXIA [None]
